FAERS Safety Report 16583716 (Version 1)
Quarter: 2019Q3

REPORT INFORMATION
  Report Type: Spontaneous
  Country: US (occurrence: US)
  Receive Date: 20190716
  Receipt Date: 20190716
  Transmission Date: 20191004
  Serious: No
  Sender: FDA-Public Use
  Company Number: None

PATIENT
  Age: 38 Year
  Sex: Female
  Weight: 83.25 kg

DRUGS (9)
  1. GASEX [Concomitant]
  2. TRULICITY [Concomitant]
     Active Substance: DULAGLUTIDE
  3. VICTOZA [Suspect]
     Active Substance: LIRAGLUTIDE
     Indication: WEIGHT DECREASED
     Dosage: ?          QUANTITY:1.6 OUNCE(S);?
     Route: 058
     Dates: start: 20170103, end: 20170601
  4. HUMALOG [Concomitant]
     Active Substance: INSULIN LISPRO
  5. PROTANDIM NURF2 [Concomitant]
  6. VITAMIN B12 [Concomitant]
     Active Substance: CYANOCOBALAMIN
  7. LEXAPRO [Concomitant]
     Active Substance: ESCITALOPRAM OXALATE
  8. MELALEUCA MULTI VITAMIN [Concomitant]
  9. CALMICID ANTACID SUPPLEMENT [Concomitant]

REACTIONS (3)
  - Therapy cessation [None]
  - Dehydration [None]
  - Diarrhoea [None]

NARRATIVE: CASE EVENT DATE: 20170605
